FAERS Safety Report 4773207-1 (Version None)
Quarter: 2005Q3

REPORT INFORMATION
  Report Type: 
  Country: None (occurrence: None)
  Receive Date: 20050919
  Receipt Date: 20041014
  Transmission Date: 20060218
  Serious: Yes (Hospitalization, Disabling)
  Sender: FDA-Public Use
  Company Number: US-MERCK-0410USA02357

PATIENT
  Age: 60 Year
  Sex: Female
  Weight: 55 kg

DRUGS (9)
  1. VIOXX [Suspect]
     Indication: OSTEOARTHRITIS
     Route: 048
     Dates: start: 20020101, end: 20030105
  2. VIOXX [Suspect]
     Route: 065
     Dates: end: 20011101
  3. VIOXX [Suspect]
     Indication: INTERVERTEBRAL DISC DEGENERATION
     Route: 048
     Dates: start: 20020101, end: 20030105
  4. VIOXX [Suspect]
     Route: 065
     Dates: end: 20011101
  5. PREMARIN [Concomitant]
     Route: 065
     Dates: start: 19920101, end: 20030101
  6. PROZAC [Concomitant]
     Indication: DEPRESSION
     Route: 065
     Dates: start: 19990101
  7. GUAIFENESIN DM [Concomitant]
     Route: 065
  8. SEREVENT [Concomitant]
     Route: 065
  9. PULMICORT [Concomitant]
     Route: 065

REACTIONS (32)
  - ADVERSE DRUG REACTION [None]
  - ASPARTATE AMINOTRANSFERASE INCREASED [None]
  - BACK PAIN [None]
  - BLOOD CHOLESTEROL INCREASED [None]
  - BRONCHIECTASIS [None]
  - CAROTID ARTERY STENOSIS [None]
  - CEREBRAL INFARCTION [None]
  - CEREBRAL ISCHAEMIA [None]
  - CEREBROVASCULAR ACCIDENT [None]
  - CONFUSIONAL STATE [None]
  - DEPRESSION [None]
  - DISTURBANCE IN ATTENTION [None]
  - HIGH DENSITY LIPOPROTEIN INCREASED [None]
  - HYPERSENSITIVITY [None]
  - HYPERTENSION [None]
  - HYPOAESTHESIA [None]
  - MEMORY IMPAIRMENT [None]
  - MIGRAINE [None]
  - MIGRAINE WITH AURA [None]
  - MITRAL VALVE INCOMPETENCE [None]
  - NAUSEA [None]
  - NERVOUS SYSTEM DISORDER [None]
  - PANIC ATTACK [None]
  - PNEUMONIA [None]
  - PNEUMONITIS [None]
  - RED BLOOD CELL SEDIMENTATION RATE INCREASED [None]
  - RESPIRATORY TRACT INFECTION [None]
  - TRANSIENT ISCHAEMIC ATTACK [None]
  - TRICUSPID VALVE INCOMPETENCE [None]
  - VISION BLURRED [None]
  - VISUAL DISTURBANCE [None]
  - VOMITING [None]
